FAERS Safety Report 9897680 (Version 1)
Quarter: 2014Q1

REPORT INFORMATION
  Report Type: Spontaneous
  Country: US (occurrence: US)
  Receive Date: 20140214
  Receipt Date: 20140214
  Transmission Date: 20141002
  Serious: Yes (Other)
  Sender: FDA-Public Use
  Company Number: US-DRREDDYS-USA/USA/13/0035227

PATIENT
  Age: 38 Year
  Sex: Female

DRUGS (3)
  1. ONDANSETRON 8 MG [Suspect]
     Indication: PRODUCT USED FOR UNKNOWN INDICATION
     Route: 048
  2. ALIMTA [Suspect]
     Indication: CHEMOTHERAPY
     Route: 065
  3. CISPLATIN [Suspect]
     Indication: CHEMOTHERAPY
     Route: 065

REACTIONS (4)
  - Hypersensitivity [Recovered/Resolved]
  - Eye swelling [Recovered/Resolved]
  - Local swelling [Recovered/Resolved]
  - Urticaria [Recovered/Resolved]
